FAERS Safety Report 10150808 (Version 1)
Quarter: 2014Q2

REPORT INFORMATION
  Report Type: Spontaneous
  Country: US (occurrence: US)
  Receive Date: 20140502
  Receipt Date: 20140502
  Transmission Date: 20141212
  Serious: No
  Sender: FDA-Public Use
  Company Number: US-ASTRAZENECA-2013SE37764

PATIENT
  Sex: Female

DRUGS (3)
  1. PRILOSEC OTC [Suspect]
     Route: 048
     Dates: start: 20130501
  2. PROBIOTIC [Concomitant]
  3. PHAZYME [Concomitant]
     Dosage: UNKNOWN

REACTIONS (6)
  - Abdominal distension [Not Recovered/Not Resolved]
  - Glossodynia [Not Recovered/Not Resolved]
  - Flatulence [Not Recovered/Not Resolved]
  - Stomatitis [Not Recovered/Not Resolved]
  - Dry mouth [Not Recovered/Not Resolved]
  - Paraesthesia oral [Not Recovered/Not Resolved]
